FAERS Safety Report 13358213 (Version 3)
Quarter: 2017Q3

REPORT INFORMATION
  Report Type: Report from Study
  Country: US (occurrence: US)
  Receive Date: 20170322
  Receipt Date: 20170717
  Transmission Date: 20171127
  Serious: Yes (Death, Hospitalization, Other)
  Sender: FDA-Public Use
  Company Number: US-GILEAD-2017-0262515

PATIENT
  Age: 50 Year
  Sex: Female

DRUGS (1)
  1. AMBRISENTAN [Suspect]
     Active Substance: AMBRISENTAN
     Indication: PULMONARY ARTERIAL HYPERTENSION
     Dosage: 5 MG, UNK
     Route: 065
     Dates: start: 20160304

REACTIONS (7)
  - Unevaluable event [Unknown]
  - Endotracheal intubation [Unknown]
  - Depression [Unknown]
  - Cardiac failure congestive [Fatal]
  - Treatment noncompliance [Unknown]
  - Critical illness [Unknown]
  - Respiratory arrest [Fatal]
